FAERS Safety Report 9360550 (Version 1)
Quarter: 2013Q2

REPORT INFORMATION
  Report Type: Spontaneous
  Country: US (occurrence: None)
  Receive Date: 20130620
  Receipt Date: 20130620
  Transmission Date: 20140414
  Serious: Yes (Other)
  Sender: FDA-Public Use
  Company Number: None

PATIENT
  Age: 58 Year
  Sex: Female
  Weight: 120 kg

DRUGS (1)
  1. METOPROLOL ER SUCCINATE [Suspect]
     Indication: ARRHYTHMIA
     Dosage: 1 PER DAY
     Route: 048
     Dates: start: 20120101, end: 20130615

REACTIONS (4)
  - Arrhythmia [None]
  - Cardiac flutter [None]
  - Product odour abnormal [None]
  - Product taste abnormal [None]
